FAERS Safety Report 6890025-9 (Version None)
Quarter: 2010Q3

REPORT INFORMATION
  Report Type: 
  Country: None (occurrence: None)
  Receive Date: 20100730
  Receipt Date: 20080709
  Transmission Date: 20110219
  Serious: Yes (Disabling, Other)
  Sender: FDA-Public Use
  Company Number: US-PFIZER INC-2008036192

PATIENT
  Sex: Male
  Weight: 79.4 kg

DRUGS (5)
  1. LIPITOR [Suspect]
     Indication: BLOOD CHOLESTEROL
     Route: 048
     Dates: start: 20020101, end: 20080327
  2. LIPITOR [Suspect]
     Indication: HYPERLIPIDAEMIA
  3. NAPROXEN [Concomitant]
  4. LOTREL [Concomitant]
     Indication: HYPERTENSION
  5. GLYBURIDE [Concomitant]

REACTIONS (3)
  - DYSPHONIA [None]
  - MUSCULAR WEAKNESS [None]
  - SPONDYLITIS [None]
